FAERS Safety Report 20138902 (Version 1)
Quarter: 2021Q4

REPORT INFORMATION
  Report Type: Spontaneous
  Country: US (occurrence: US)
  Receive Date: 20211202
  Receipt Date: 20211202
  Transmission Date: 20220304
  Serious: No
  Sender: FDA-Public Use
  Company Number: US-drreddys-SPO/USA/21/0144366

PATIENT
  Age: 24 Year
  Sex: Female

DRUGS (1)
  1. ZENATANE [Suspect]
     Active Substance: ISOTRETINOIN
     Indication: Product used for unknown indication
     Dosage: RMA ISSUE DATE: 20 AUGUST 2021 12:00:00 AM, 22 SEPTEMBER 2021 12:00:00 AM, 27 OCTOBER 2021 12:00:00

REACTIONS (1)
  - Treatment noncompliance [Unknown]
